FAERS Safety Report 8020103-2 (Version None)
Quarter: 2012Q1

REPORT INFORMATION
  Report Type: 
  Country: None (occurrence: None)
  Receive Date: 20120103
  Receipt Date: 20111228
  Transmission Date: 20120608
  Serious: Yes (Other)
  Sender: FDA-Public Use
  Company Number: TR-ABBOTT-11P-161-0881577-00

PATIENT
  Sex: Male
  Weight: 122 kg

DRUGS (4)
  1. DEPAKENE [Suspect]
     Indication: BIPOLAR DISORDER
     Dosage: 1500-2000 MG DAILY
     Route: 048
     Dates: start: 20060101
  2. WELLBUTRIN [Concomitant]
     Indication: PRODUCT USED FOR UNKNOWN INDICATION
     Dates: start: 20110301
  3. SEROQUEL [Concomitant]
     Indication: PRODUCT USED FOR UNKNOWN INDICATION
     Dates: start: 20110101
  4. AVELOX [Concomitant]
     Indication: PRODUCT USED FOR UNKNOWN INDICATION
     Dates: start: 20110101

REACTIONS (2)
  - DIABETIC FOOT [None]
  - CONDITION AGGRAVATED [None]
